FAERS Safety Report 7478252-3 (Version None)
Quarter: 2011Q2

REPORT INFORMATION
  Report Type: 
  Country: None (occurrence: None)
  Receive Date: 20110513
  Receipt Date: 20110510
  Transmission Date: 20111010
  Serious: Yes (Hospitalization, Other)
  Sender: FDA-Public Use
  Company Number: PHHO2011DE04945

PATIENT
  Sex: Female

DRUGS (8)
  1. LOSARTAN POTASSIUM AND HYDROCHLOROTHIAZIDE [Concomitant]
     Indication: HYPERTENSION
  2. MEDIABET [Concomitant]
     Indication: DIABETES MELLITUS
  3. SIMVASTATIN [Concomitant]
     Indication: HYPERTENSION
  4. FELODIPINE [Concomitant]
     Indication: HYPERTENSION
  5. MARCUMAR [Concomitant]
     Indication: PROPHYLAXIS
  6. LETROZOLE [Suspect]
     Indication: BREAST CANCER
     Dosage: 2.5 MG, UNK
     Route: 048
     Dates: start: 20070126
  7. DILATREND [Concomitant]
     Indication: HYPERTENSION
  8. FUROSEMID [Concomitant]
     Indication: HYPERTENSION

REACTIONS (8)
  - HYPERTENSION [None]
  - DYSPNOEA [None]
  - CARDIOVASCULAR DISORDER [None]
  - HYPERTENSIVE CRISIS [None]
  - ADAMS-STOKES SYNDROME [None]
  - CARDIAC FAILURE [None]
  - PAIN IN EXTREMITY [None]
  - DIABETES MELLITUS [None]
